APPROVED DRUG PRODUCT: OXALIPLATIN
Active Ingredient: OXALIPLATIN
Strength: 100MG/20ML (5MG/ML)
Dosage Form/Route: INJECTABLE;INTRAVENOUS
Application: N022160 | Product #002 | TE Code: AP
Applicant: TEVA PHARMACEUTICALS USA
Approved: Aug 7, 2009 | RLD: Yes | RS: Yes | Type: RX